FAERS Safety Report 9989190 (Version 1)
Quarter: 2014Q1

REPORT INFORMATION
  Report Type: Spontaneous
  Country: AU (occurrence: AU)
  Receive Date: 20140310
  Receipt Date: 20140310
  Transmission Date: 20141002
  Serious: Yes (Life-Threatening, Hospitalization, Other)
  Sender: FDA-Public Use
  Company Number: AU-BAYER-2014-030007

PATIENT
  Sex: Female

DRUGS (1)
  1. YAZ [Suspect]
     Indication: CONTRACEPTION
     Dosage: UNK
     Dates: start: 201203

REACTIONS (17)
  - Pulmonary embolism [Recovering/Resolving]
  - Arterial thrombosis [None]
  - Thrombosis [None]
  - Cardiac disorder [None]
  - Syncope [Recovering/Resolving]
  - Pallor [Recovering/Resolving]
  - Fatigue [Recovering/Resolving]
  - Somnolence [Recovering/Resolving]
  - Dyspnoea [Recovering/Resolving]
  - Chest pain [Recovering/Resolving]
  - Palpitations [Recovering/Resolving]
  - Painful respiration [Recovering/Resolving]
  - Blood pressure systolic decreased [Recovering/Resolving]
  - Post-traumatic stress disorder [None]
  - Panic attack [None]
  - Flashback [None]
  - Feeling abnormal [None]
